FAERS Safety Report 9618727 (Version 1)
Quarter: 2013Q4

REPORT INFORMATION
  Report Type: Spontaneous
  Country: FR (occurrence: FR)
  Receive Date: 20131014
  Receipt Date: 20131014
  Transmission Date: 20140711
  Serious: Yes (Hospitalization)
  Sender: FDA-Public Use
  Company Number: FR-ELI_LILLY_AND_COMPANY-FR201310001587

PATIENT
  Age: 43 Year
  Sex: Male

DRUGS (4)
  1. CYMBALTA [Suspect]
     Indication: SCHIZOPHRENIA
     Dosage: 60 MG, QD
     Route: 048
     Dates: start: 201309, end: 201309
  2. CYMBALTA [Suspect]
     Indication: DEPRESSION
  3. HALDOL [Concomitant]
     Indication: PSYCHOTIC DISORDER
     Dosage: 5 MG, QD
     Route: 065
     Dates: start: 2003
  4. VALIUM [Concomitant]
     Indication: PRODUCT USED FOR UNKNOWN INDICATION
     Dosage: UNK, UNKNOWN
     Route: 065

REACTIONS (3)
  - Pulmonary embolism [Recovered/Resolved]
  - Coma [Recovered/Resolved]
  - Renal failure [Unknown]
